FAERS Safety Report 10171915 (Version 2)
Quarter: 2014Q2

REPORT INFORMATION
  Report Type: Spontaneous
  Country: IN (occurrence: IN)
  Receive Date: 20140515
  Receipt Date: 20140516
  Transmission Date: 20141212
  Serious: No
  Sender: FDA-Public Use
  Company Number: IN-009507513-1405IND005925

PATIENT
  Sex: Female

DRUGS (1)
  1. JANUMET [Suspect]
     Indication: DIABETES MELLITUS
     Dosage: UNK UNK, BID
     Route: 048

REACTIONS (1)
  - Weight increased [Not Recovered/Not Resolved]
